FAERS Safety Report 14001980 (Version 1)
Quarter: 2017Q3

REPORT INFORMATION
  Report Type: Spontaneous
  Country: US (occurrence: US)
  Receive Date: 20170922
  Receipt Date: 20170922
  Transmission Date: 20171128
  Serious: Yes (Other)
  Sender: FDA-Public Use
  Company Number: US-JNJFOC-20170912244

PATIENT
  Sex: Female

DRUGS (1)
  1. XARELTO [Suspect]
     Active Substance: RIVAROXABAN
     Indication: PRODUCT USED FOR UNKNOWN INDICATION
     Route: 048
     Dates: start: 201211, end: 20160408

REACTIONS (4)
  - Haematoma [Unknown]
  - Subdural haematoma [Unknown]
  - Brain contusion [Unknown]
  - Eyelid haematoma [Unknown]

NARRATIVE: CASE EVENT DATE: 20150928
